FAERS Safety Report 6348762-0 (Version None)
Quarter: 2009Q3

REPORT INFORMATION
  Report Type: 
  Country: None (occurrence: None)
  Receive Date: 20090911
  Receipt Date: 20090902
  Transmission Date: 20100115
  Serious: Yes (Other)
  Sender: FDA-Public Use
  Company Number: FR-ASTRAZENECA-2009SE11383

PATIENT
  Age: 117 Day
  Sex: Female

DRUGS (1)
  1. EMLA [Suspect]
     Indication: LOCAL ANAESTHESIA
     Route: 061
     Dates: start: 20090803, end: 20090803

REACTIONS (3)
  - AGITATION [None]
  - CRYING [None]
  - RASH [None]
